FAERS Safety Report 8275773-0 (Version None)
Quarter: 2012Q2

REPORT INFORMATION
  Report Type: 
  Country: None (occurrence: None)
  Receive Date: 20120410
  Receipt Date: 20120410
  Transmission Date: 20120825
  Serious: Yes (Hospitalization)
  Sender: FDA-Public Use
  Company Number: None

PATIENT
  Age: 60 Year
  Sex: Male
  Weight: 112.6 kg

DRUGS (1)
  1. METFORMIN HCL [Suspect]
     Indication: DIABETES MELLITUS
     Dates: start: 20111020, end: 20111123

REACTIONS (5)
  - LACTIC ACIDOSIS [None]
  - PARAESTHESIA [None]
  - HEADACHE [None]
  - CHEST PAIN [None]
  - FEELING HOT [None]
